FAERS Safety Report 9276758 (Version 1)
Quarter: 2013Q2

REPORT INFORMATION
  Report Type: Report from Study
  Country: US (occurrence: US)
  Receive Date: 20130507
  Receipt Date: 20130507
  Transmission Date: 20140414
  Serious: Yes (Life-Threatening, Hospitalization, Other)
  Sender: FDA-Public Use
  Company Number: US-ACTELION-A-US2012-67255

PATIENT
  Age: 2 Year
  Sex: Female

DRUGS (5)
  1. TRACLEER [Suspect]
     Indication: PULMONARY ARTERIAL HYPERTENSION
     Dosage: UNK
     Route: 048
  2. SILDENAFIL [Concomitant]
  3. OXYGEN [Concomitant]
  4. FUROSEMIDE [Concomitant]
  5. REMODULIN [Concomitant]

REACTIONS (5)
  - Cyanosis [Unknown]
  - Nasopharyngitis [Recovered/Resolved]
  - Vomiting [Unknown]
  - Syncope [Unknown]
  - Oxygen saturation decreased [Unknown]
